FAERS Safety Report 8191225 (Version 3)
Quarter: 2013Q4

REPORT INFORMATION
  Report Type: Report from Study
  Country: JP (occurrence: JP)
  Receive Date: 20111020
  Receipt Date: 20131025
  Transmission Date: 20140711
  Serious: Yes (Death, Other)
  Sender: FDA-Public Use
  Company Number: PHHY2011JP92016

PATIENT
  Age: 54 Year
  Sex: Male

DRUGS (18)
  1. LEPONEX / CLOZARIL [Suspect]
     Indication: SCHIZOPHRENIA
     Dosage: 12.5 MG
     Route: 048
     Dates: start: 20110511, end: 20110511
  2. LEPONEX / CLOZARIL [Suspect]
     Dosage: 25 MG
     Route: 048
     Dates: start: 20110512, end: 20110514
  3. LEPONEX / CLOZARIL [Suspect]
     Dosage: 50 MG
     Route: 048
     Dates: start: 20110515, end: 20110517
  4. LEPONEX / CLOZARIL [Suspect]
     Dosage: 75 MG
     Route: 048
     Dates: start: 20110518, end: 20110519
  5. LEPONEX / CLOZARIL [Suspect]
     Dosage: 100 MG
     Route: 048
     Dates: start: 20110520, end: 20110521
  6. LEPONEX / CLOZARIL [Suspect]
     Dosage: 125 MG
     Route: 048
     Dates: start: 20110522, end: 20110524
  7. LEPONEX / CLOZARIL [Suspect]
     Dosage: 150 MG
     Route: 048
     Dates: start: 20110525, end: 20110527
  8. LEPONEX / CLOZARIL [Suspect]
     Dosage: 175 MG
     Route: 048
     Dates: start: 20110528, end: 20110530
  9. LEPONEX / CLOZARIL [Suspect]
     Dosage: 200 MG
     Route: 048
     Dates: start: 20110531, end: 20111016
  10. LEPONEX / CLOZARIL [Suspect]
     Dosage: 287 MG
  11. LEVOMEPROMAZINE MALEATE [Concomitant]
     Indication: NEOPLASM MALIGNANT
     Dosage: 25 MG, UNK
     Route: 048
  12. LEVOMEPROMAZINE MALEATE [Concomitant]
     Dosage: 20 MG, UNK
     Route: 048
  13. LEVOMEPROMAZINE MALEATE [Concomitant]
     Dosage: 15 MG, UNK
     Route: 048
  14. LEVOMEPROMAZINE MALEATE [Concomitant]
     Dosage: 5 MG, UNK
     Route: 048
  15. LEVOMEPROMAZINE MALEATE [Concomitant]
     Dosage: 15 MG, UNK
     Route: 048
     Dates: end: 20111016
  16. BLONANSERIN [Concomitant]
     Indication: SCHIZOPHRENIA, DISORGANISED TYPE
     Dosage: 24 MG, UNK
     Route: 048
     Dates: start: 20110511, end: 20110512
  17. FLUNITRAZEPAM [Concomitant]
     Indication: SCHIZOPHRENIA, DISORGANISED TYPE
     Dosage: 1 MG, UNK
     Route: 048
     Dates: end: 20111016
  18. QUAZEPAM [Concomitant]
     Indication: SCHIZOPHRENIA, DISORGANISED TYPE
     Dosage: 15 MG, UNK
     Route: 048
     Dates: end: 20111016

REACTIONS (4)
  - Lung carcinoma cell type unspecified stage IV [Fatal]
  - Cardio-respiratory arrest [Fatal]
  - Liver disorder [Unknown]
  - Malaise [Unknown]
